FAERS Safety Report 8767364 (Version 2)
Quarter: 2012Q4

REPORT INFORMATION
  Report Type: 
  Country: US (occurrence: US)
  Receive Date: 20120904
  Receipt Date: 20121008
  Transmission Date: 20130627
  Serious: Yes (Other)
  Sender: FDA-Public Use
  Company Number: US-JNJFOC-20120812895

PATIENT
  Age: 4 Month
  Sex: Female

DRUGS (1)
  1. EXTRA STRENGTH TYLENOL PM [Suspect]
     Indication: TEETHING
     Route: 048
     Dates: start: 20120823

REACTIONS (3)
  - Hypersomnia [Unknown]
  - Wrong drug administered [Unknown]
  - Wrong technique in drug usage process [Unknown]
